FAERS Safety Report 14129398 (Version 2)
Quarter: 2017Q4

REPORT INFORMATION
  Report Type: Report from Study
  Country: US (occurrence: US)
  Receive Date: 20171026
  Receipt Date: 20171110
  Transmission Date: 20180321
  Serious: Yes (Disabling, Other)
  Sender: FDA-Public Use
  Company Number: PHEH2017US034201

PATIENT
  Age: 72 Year

DRUGS (1)
  1. KISQALI [Suspect]
     Active Substance: RIBOCICLIB
     Indication: PRODUCT USED FOR UNKNOWN INDICATION
     Dosage: 600 MG, QD
     Route: 048
     Dates: start: 20170424

REACTIONS (6)
  - Renal failure [Not Recovered/Not Resolved]
  - Hypokalaemia [Unknown]
  - Malaise [Unknown]
  - Hypophagia [Unknown]
  - Drug hypersensitivity [Unknown]
  - Dysgeusia [Unknown]

NARRATIVE: CASE EVENT DATE: 20171018
